FAERS Safety Report 10257118 (Version 1)
Quarter: 2014Q2

REPORT INFORMATION
  Report Type: Spontaneous
  Country: CA (occurrence: CA)
  Receive Date: 20140625
  Receipt Date: 20140625
  Transmission Date: 20141212
  Serious: Yes (Death)
  Sender: FDA-Public Use
  Company Number: CA-ROCHE-1423956

PATIENT
  Age: 64 Year
  Sex: Male
  Weight: 91 kg

DRUGS (5)
  1. CAPECITABINE [Suspect]
     Indication: PRODUCT USED FOR UNKNOWN INDICATION
     Dosage: THERAPY DURATION 9 DAYS
     Route: 048
  2. DEXAMETHASONE [Concomitant]
  3. METOCLOPRAMIDE [Concomitant]
  4. OXALIPLATIN [Concomitant]
     Route: 042
  5. ZOFRAN [Concomitant]

REACTIONS (3)
  - Arrhythmia [Fatal]
  - Arteriosclerosis [Fatal]
  - Sudden cardiac death [Fatal]
